FAERS Safety Report 6984717-0 (Version None)
Quarter: 2010Q3

REPORT INFORMATION
  Report Type: 
  Country: None (occurrence: None)
  Receive Date: 20100913
  Receipt Date: 20100902
  Transmission Date: 20110219
  Serious: Yes (Other)
  Sender: FDA-Public Use
  Company Number: 105406

PATIENT

DRUGS (2)
  1. MIDAZOLAM HCL [Suspect]
     Indication: SEDATION
  2. MIDAZOLAM HCL [Suspect]

REACTIONS (2)
  - INCORRECT DOSE ADMINISTERED [None]
  - MEDICATION ERROR [None]
